FAERS Safety Report 23551304 (Version 1)
Quarter: 2024Q1

REPORT INFORMATION
  Report Type: Spontaneous
  Country: US (occurrence: US)
  Receive Date: 20240222
  Receipt Date: 20240222
  Transmission Date: 20240410
  Serious: Yes (Other)
  Sender: FDA-Public Use
  Company Number: US-AMGEN-USASP2024034189

PATIENT
  Age: 72 Year
  Sex: Female

DRUGS (1)
  1. TAVNEOS [Suspect]
     Active Substance: AVACOPAN
     Indication: Antineutrophil cytoplasmic antibody
     Dosage: UNK UNK, BID (TWICE DAILY)
     Route: 065
     Dates: start: 20231109

REACTIONS (2)
  - Bone pain [Unknown]
  - Spinal pain [Unknown]
